FAERS Safety Report 17183359 (Version 1)
Quarter: 2019Q4

REPORT INFORMATION
  Report Type: Other
  Country: PL (occurrence: PL)
  Receive Date: 20191220
  Receipt Date: 20191220
  Transmission Date: 20200122
  Serious: Yes (Hospitalization, Other)
  Sender: FDA-Public Use
  Company Number: PL-LEADING PHARMA, LLC-2078045

PATIENT
  Age: 56 Year
  Sex: Female

DRUGS (8)
  1. ESTAZOLAM. [Concomitant]
     Active Substance: ESTAZOLAM
     Route: 065
  2. PAROXETINE. [Concomitant]
     Active Substance: PAROXETINE
     Route: 065
  3. CLONAZEPAM. [Concomitant]
     Active Substance: CLONAZEPAM
     Route: 065
  4. CLOMIPRAMINE [Concomitant]
     Active Substance: CLOMIPRAMINE
     Route: 065
  5. VENLAFAXINE [Concomitant]
     Active Substance: VENLAFAXINE HYDROCHLORIDE
  6. CITALOPRAM [Concomitant]
     Active Substance: CITALOPRAM HYDROBROMIDE
     Route: 065
  7. DIAZEPAM. [Concomitant]
     Active Substance: DIAZEPAM
     Route: 065
  8. LORAZEPAM. [Suspect]
     Active Substance: LORAZEPAM
     Indication: ANXIETY DISORDER
     Route: 065

REACTIONS (14)
  - Toxicity to various agents [Recovered/Resolved]
  - Drug resistance [Unknown]
  - Drug dependence [Recovered/Resolved]
  - Generalised tonic-clonic seizure [Recovering/Resolving]
  - Headache [Unknown]
  - Cardiovascular disorder [Unknown]
  - Condition aggravated [Unknown]
  - Withdrawal syndrome [Unknown]
  - Product administration interrupted [Unknown]
  - Back pain [Recovering/Resolving]
  - Hypertension [Unknown]
  - Irritability [Unknown]
  - Palpitations [Unknown]
  - Insomnia [Unknown]
